FAERS Safety Report 11159313 (Version 1)
Quarter: 2015Q2

REPORT INFORMATION
  Report Type: Spontaneous
  Country: CA (occurrence: CA)
  Receive Date: 20150603
  Receipt Date: 20150603
  Transmission Date: 20150821
  Serious: Yes (Hospitalization, Other)
  Sender: FDA-Public Use
  Company Number: CA-ASTELLAS-2015US004815

PATIENT
  Sex: Female

DRUGS (1)
  1. PROGRAF [Suspect]
     Active Substance: TACROLIMUS\TACROLIMUS ANHYDROUS
     Indication: NEPHROTIC SYNDROME
     Dosage: 5 MG, TWICE DAILY (10 MG DAILY)
     Route: 048
     Dates: start: 20071130

REACTIONS (6)
  - Drug dose omission [Unknown]
  - Blood test abnormal [Unknown]
  - Blindness unilateral [Unknown]
  - Visual acuity reduced [Unknown]
  - Renal disorder [Unknown]
  - Product use issue [Unknown]
